FAERS Safety Report 12498448 (Version 2)
Quarter: 2016Q4

REPORT INFORMATION
  Report Type: Report from Study
  Country: US (occurrence: US)
  Receive Date: 20160627
  Receipt Date: 20161003
  Transmission Date: 20170207
  Serious: Yes (Hospitalization)
  Sender: FDA-Public Use
  Company Number: US-ACTELION-A-US2016-138104

PATIENT
  Age: 81 Year
  Sex: Female

DRUGS (3)
  1. LASIX [Concomitant]
     Active Substance: FUROSEMIDE
  2. DILTIAZEM. [Concomitant]
     Active Substance: DILTIAZEM
  3. OPSUMIT [Suspect]
     Active Substance: MACITENTAN
     Indication: PULMONARY ARTERIAL HYPERTENSION
     Dosage: 10 MG, QD
     Route: 048
     Dates: start: 20140807

REACTIONS (10)
  - Internal haemorrhage [Unknown]
  - Anaemia [Unknown]
  - Syncope [Unknown]
  - Fall [Unknown]
  - Dehydration [Unknown]
  - Back pain [Unknown]
  - Haemoglobin decreased [Unknown]
  - Head injury [Unknown]
  - Hypotension [Unknown]
  - Lethargy [Unknown]
